FAERS Safety Report 5255756-5 (Version None)
Quarter: 2007Q1

REPORT INFORMATION
  Report Type: 
  Country: None (occurrence: None)
  Receive Date: 20070226
  Receipt Date: 20070216
  Transmission Date: 20070707
  Serious: No
  Sender: FDA-Public Use
  Company Number: 2007-154671-NL

PATIENT
  Sex: Female

DRUGS (11)
  1. PANCURONIUM BROMIDE [Suspect]
     Route: 042
     Dates: start: 20061007, end: 20061007
  2. CAPTOPRIL [Suspect]
     Indication: CARDIAC FAILURE
     Dosage: 0.1 MG/KG
     Route: 048
     Dates: start: 20061007, end: 20061007
  3. AUGMENTIN [Suspect]
     Dosage: 100 MG/KG
     Route: 041
     Dates: start: 20061004, end: 20061007
  4. SILDENAFIL CITRATE [Concomitant]
  5. FUROSEMIDE [Concomitant]
  6. SPIRONOLACTONE [Concomitant]
  7. COLECALCIFEROL [Concomitant]
  8. AMPHOTERICIN B [Concomitant]
  9. MUPIROCIN [Concomitant]
  10. CHLORAL HYDRATE [Concomitant]
  11. MORPHINE [Concomitant]

REACTIONS (1)
  - ANGIOEDEMA [None]
